FAERS Safety Report 9825690 (Version 2)
Quarter: 2014Q1

REPORT INFORMATION
  Report Type: Report from Study
  Country: US (occurrence: US)
  Receive Date: 20140117
  Receipt Date: 20140117
  Transmission Date: 20141002
  Serious: Yes (Hospitalization, Other)
  Sender: FDA-Public Use
  Company Number: US-PURDUE-USA-2013-0108478

PATIENT
  Age: 53 Year
  Sex: Male

DRUGS (3)
  1. OXY CR TAB [Suspect]
     Indication: LUNG NEOPLASM MALIGNANT
     Dosage: 20 MG, BID
     Route: 048
     Dates: start: 20131004
  2. OXY CR TAB [Suspect]
     Dosage: 60 MG, BID
     Route: 048
  3. OXY CR TAB [Suspect]
     Dosage: 80 MG, Q12H
     Route: 048
     Dates: start: 20131108

REACTIONS (4)
  - Intestinal obstruction [Recovered/Resolved]
  - Dehydration [Unknown]
  - Weight decreased [Unknown]
  - Drug ineffective [Not Recovered/Not Resolved]
